FAERS Safety Report 12480893 (Version 1)
Quarter: 2016Q2

REPORT INFORMATION
  Report Type: Spontaneous
  Country: US (occurrence: US)
  Receive Date: 20160620
  Receipt Date: 20160620
  Transmission Date: 20160815
  Serious: Yes (Other)
  Sender: FDA-Public Use
  Company Number: US-BAUSCH-BL-2015-019534

PATIENT
  Sex: Male

DRUGS (2)
  1. PROVENGE [Suspect]
     Active Substance: SIPULEUCEL-T
     Dosage: 250MG, SINGLE
     Route: 042
     Dates: start: 20150731, end: 20150731
  2. PROVENGE [Suspect]
     Active Substance: SIPULEUCEL-T
     Indication: PRODUCT USED FOR UNKNOWN INDICATION
     Dosage: 250MG, SINGLE
     Route: 042
     Dates: start: 20150710, end: 20150710

REACTIONS (1)
  - Disease progression [Unknown]
